FAERS Safety Report 25862082 (Version 1)
Quarter: 2025Q3

REPORT INFORMATION
  Report Type: Spontaneous
  Country: BR (occurrence: BR)
  Receive Date: 20250930
  Receipt Date: 20250930
  Transmission Date: 20251020
  Serious: No
  Sender: BAXTER
  Company Number: BR-BAXTER-2025BAX021876

PATIENT

DRUGS (1)
  1. TISSEEL LYO [Suspect]
     Active Substance: FIBRINOGEN HUMAN\HUMAN THROMBIN

REACTIONS (1)
  - No adverse event [Unknown]
